FAERS Safety Report 8708465 (Version 2)
Quarter: 2012Q4

REPORT INFORMATION
  Report Type: 
  Country: US (occurrence: US)
  Receive Date: 20120806
  Receipt Date: 20121010
  Transmission Date: 20130627
  Serious: Yes (Hospitalization)
  Sender: FDA-Public Use
  Company Number: US-BAYER-2012-077187

PATIENT
  Age: 82 Year
  Sex: Female
  Weight: 59 kg

DRUGS (3)
  1. ALEVE CAPLET/TABLET,MIDOL EXTENDED RELIEF CAPLET [Suspect]
     Indication: LIMB INJURY
     Dosage: 2 TAB, QD
     Route: 048
     Dates: start: 20120729
  2. VITAMINS [Concomitant]
  3. IBUPROFEN [Concomitant]

REACTIONS (6)
  - Cerebrovascular accident [None]
  - Confusional state [None]
  - Speech disorder [None]
  - Disorientation [None]
  - Clumsiness [None]
  - Speech disorder [None]
